FAERS Safety Report 13277303 (Version 1)
Quarter: 2017Q1

REPORT INFORMATION
  Report Type: Spontaneous
  Country: US (occurrence: US)
  Receive Date: 20170228
  Receipt Date: 20170228
  Transmission Date: 20170428
  Serious: No
  Sender: FDA-Public Use
  Company Number: US-GALDERMA-US16003121

PATIENT
  Sex: Male

DRUGS (1)
  1. DESONIDE (DESONIDE) LOTION 0.05% [Suspect]
     Active Substance: DESONIDE
     Indication: SKIN DISORDER
     Dosage: 0.05%
     Route: 061
     Dates: start: 201603

REACTIONS (3)
  - Application site erythema [Unknown]
  - Condition aggravated [Unknown]
  - Skin burning sensation [Unknown]

NARRATIVE: CASE EVENT DATE: 20160412
